FAERS Safety Report 10378695 (Version 1)
Quarter: 2014Q3

REPORT INFORMATION
  Report Type: Spontaneous
  Country: US (occurrence: None)
  Receive Date: 20140811
  Receipt Date: 20140811
  Transmission Date: 20150326
  Serious: No
  Sender: FDA-Public Use
  Company Number: None

PATIENT
  Age: 43 Year
  Sex: Female
  Weight: 120.2 kg

DRUGS (9)
  1. DIAZEPAM. [Concomitant]
     Active Substance: DIAZEPAM
  2. XARELTO (RIVAROXABAN) JANSSEN PHARMACEUTICALS, INC [Suspect]
     Active Substance: RIVAROXABAN
     Indication: PULMONARY EMBOLISM
     Dosage: 1 TABLET
     Route: 048
     Dates: start: 20140405
  3. VITAMIN B12 [Concomitant]
     Active Substance: CYANOCOBALAMIN
  4. XARELTO (RIVAROXABAN) JANSSEN PHARMACEUTICALS, INC [Suspect]
     Active Substance: RIVAROXABAN
     Indication: THROMBOSIS
     Dosage: 1 TABLET
     Route: 048
     Dates: start: 20140405
  5. HYDROCODONE [Concomitant]
     Active Substance: HYDROCODONE
  6. TRAMADOL [Concomitant]
     Active Substance: TRAMADOL
  7. XARELTO (RIVAROXABAN) JANSSEN PHARMACEUTICALS, INC [Suspect]
     Active Substance: RIVAROXABAN
     Indication: DEEP VEIN THROMBOSIS
     Dosage: 1 TABLET
     Route: 048
     Dates: start: 20140405
  8. XARELTO [Concomitant]
     Active Substance: RIVAROXABAN
  9. MAGNESIUM [Concomitant]
     Active Substance: MAGNESIUM

REACTIONS (10)
  - Lipoma [None]
  - Muscle spasms [None]
  - Spinal disorder [None]
  - Musculoskeletal pain [None]
  - Swelling [None]
  - Hypoaesthesia [None]
  - Nerve compression [None]
  - Paraesthesia [None]
  - Pain in extremity [None]
  - Pain [None]

NARRATIVE: CASE EVENT DATE: 20140405
